FAERS Safety Report 17664269 (Version 2)
Quarter: 2020Q2

REPORT INFORMATION
  Report Type: Spontaneous
  Country: US (occurrence: US)
  Receive Date: 20200414
  Receipt Date: 20200512
  Transmission Date: 20200713
  Serious: Yes (Hospitalization, Other)
  Sender: FDA-Public Use
  Company Number: US-GLAXOSMITHKLINE-US2020062917

PATIENT
  Sex: Female

DRUGS (1)
  1. ADVAIR DISKUS [Suspect]
     Active Substance: FLUTICASONE PROPIONATE\SALMETEROL XINAFOATE
     Indication: ASTHMA
     Dosage: UNK (MANY YEARS AGO)
     Route: 055

REACTIONS (7)
  - Cerebrovascular accident [Not Recovered/Not Resolved]
  - Foot operation [Recovered/Resolved]
  - Diabetic coma [Recovered/Resolved]
  - Thrombosis [Recovered/Resolved]
  - Bone operation [Recovered/Resolved]
  - Amnesia [Not Recovered/Not Resolved]
  - Expired product administered [Unknown]

NARRATIVE: CASE EVENT DATE: 2005
